FAERS Safety Report 8888295 (Version 1)
Quarter: 2012Q4

REPORT INFORMATION
  Report Type: 
  Country: SE (occurrence: SE)
  Receive Date: 20121106
  Receipt Date: 20121106
  Transmission Date: 20130627
  Serious: Yes (Hospitalization)
  Sender: FDA-Public Use
  Company Number: SE-PFIZER INC-2012268968

PATIENT
  Sex: Male
  Weight: 81 kg

DRUGS (14)
  1. GENOTROPIN [Suspect]
     Indication: PANHYPOPITUITARISM
     Dosage: UNK
     Route: 058
     Dates: start: 20000204
  2. LEVOTHYROXINE [Concomitant]
     Indication: BLOOD THYROID STIMULATING HORMONE DECREASED
     Dosage: UNK
     Dates: start: 19891001
  3. LEVOTHYROXINE [Concomitant]
     Indication: PRIMARY HYPOTHYROIDISM
  4. HYDROCORTISONE [Concomitant]
     Indication: BLOOD CORTICOTROPHIN DECREASED
     Dosage: UNK
     Dates: start: 19891001
  5. TROMBYL [Concomitant]
     Indication: ANGINA PECTORIS
     Dosage: UNK
     Dates: start: 20040601
  6. LANZO [Concomitant]
     Indication: GASTRITIS
     Dosage: UNK
     Dates: start: 20040611
  7. LANZO [Concomitant]
     Indication: ESOPHAGITIS
  8. LANZO [Concomitant]
     Indication: ULCER
  9. PREDNISOLON [Concomitant]
     Indication: BLOOD CORTICOTROPHIN DECREASED
     Dosage: UNK
     Dates: start: 20040611
  10. LASIX RETARD [Concomitant]
     Indication: HYPERTENSION
     Dosage: UNK
     Dates: start: 20040601
  11. TESTOSTERONE [Concomitant]
     Indication: BLOOD LUTEINISING HORMONE DECREASED
     Dosage: UNK
     Dates: start: 19891001
  12. TESTOSTERONE [Concomitant]
     Indication: BLOOD FOLLICLE STIMULATING HORMONE DECREASED
  13. TESTOSTERONE [Concomitant]
     Indication: TESTICULAR HYPOGONADISM
  14. SIMVASTATIN [Concomitant]
     Indication: HYPERLIPIDEMIA
     Dosage: UNK
     Dates: start: 20060505

REACTIONS (1)
  - Infection [Unknown]
